FAERS Safety Report 6974976-2 (Version None)
Quarter: 2010Q3

REPORT INFORMATION
  Report Type: 
  Country: None (occurrence: None)
  Receive Date: 20100909
  Receipt Date: 20090120
  Transmission Date: 20110219
  Serious: No
  Sender: FDA-Public Use
  Company Number: US-WYE-H07792009

PATIENT
  Sex: Female
  Weight: 56.75 kg

DRUGS (6)
  1. PRISTIQ [Suspect]
     Indication: DEPRESSION
     Route: 048
     Dates: start: 20090118, end: 20090119
  2. PHENERGAN [Concomitant]
  3. ADDERALL 10 [Concomitant]
  4. PROZAC [Concomitant]
  5. KLONOPIN [Concomitant]
  6. XANAX [Concomitant]

REACTIONS (3)
  - DYSPEPSIA [None]
  - DYSPNOEA [None]
  - HEADACHE [None]
